FAERS Safety Report 8445403-3 (Version None)
Quarter: 2012Q2

REPORT INFORMATION
  Report Type: 
  Country: None (occurrence: None)
  Receive Date: 20120618
  Receipt Date: 20120109
  Transmission Date: 20120825
  Serious: No
  Sender: FDA-Public Use
  Company Number: US-TEVA-317581USA

PATIENT
  Sex: Female
  Weight: 57.658 kg

DRUGS (3)
  1. OXYCODONE HCL [Concomitant]
     Indication: HEADACHE
     Route: 048
     Dates: start: 20070101
  2. FENTORA [Suspect]
     Route: 002
  3. FENTORA [Suspect]
     Route: 002
     Dates: start: 20110101

REACTIONS (1)
  - SALIVARY HYPERSECRETION [None]
